FAERS Safety Report 7369943-3 (Version None)
Quarter: 2011Q1

REPORT INFORMATION
  Report Type: 
  Country: None (occurrence: None)
  Receive Date: 20110318
  Receipt Date: 20110318
  Transmission Date: 20110831
  Serious: Yes (Hospitalization)
  Sender: FDA-Public Use
  Company Number: None

PATIENT
  Sex: Female
  Weight: 61 kg

DRUGS (2)
  1. AZACITIDINE [Suspect]
     Indication: ACUTE MYELOID LEUKAEMIA
     Dosage: AZACITIDINE 75 MG/M2 QD IV
     Route: 042
  2. REVLIMID [Suspect]
     Dosage: REVLEMMID 25 MG QD PO
     Route: 048

REACTIONS (3)
  - FEBRILE NEUTROPENIA [None]
  - BACTERAEMIA [None]
  - PNEUMONIA [None]
